FAERS Safety Report 9317513 (Version 1)
Quarter: 2013Q1

REPORT INFORMATION
  Report Type: Spontaneous
  Country: US (occurrence: None)
  Receive Date: 20121219
  Receipt Date: 20121219
  Transmission Date: 20140127
  Serious: Yes (Other)
  Sender: FDA-Public Use
  Company Number: CN-20120012

PATIENT
  Age: 52 Year
  Sex: Male

DRUGS (4)
  1. LIPIODOL [Suspect]
     Indication: THERAPEUTIC EMBOLISATION
     Route: 014
  2. PIRARUBICIN [Concomitant]
  3. HYDROXYCAMPTOTHECIN (HYDROXYCAMPTOTHECIN) (HYDROXYCAMPTOTHECIN) [Concomitant]
  4. CISPLATIN (CISPLATIN) (CISPLATIN) [Concomitant]

REACTIONS (4)
  - Cerebral artery embolism [None]
  - Pulmonary oil microembolism [None]
  - Off label use [None]
  - Post procedural complication [None]
